FAERS Safety Report 11746164 (Version 1)
Quarter: 2015Q4

REPORT INFORMATION
  Report Type: Spontaneous
  Country: US (occurrence: None)
  Receive Date: 20151116
  Receipt Date: 20151116
  Transmission Date: 20160304
  Serious: Yes (Disabling)
  Sender: FDA-Public Use
  Company Number: None

PATIENT
  Age: 49 Year
  Sex: Female
  Weight: 86.18 kg

DRUGS (1)
  1. CIPRO [Suspect]
     Active Substance: CIPROFLOXACIN HYDROCHLORIDE
     Indication: ANTIBIOTIC THERAPY
     Dosage: 3XDAY FOR 7 DAYS TAKEN BY MOUTH
     Route: 048
     Dates: start: 20150615, end: 20150622

REACTIONS (1)
  - Ligament rupture [None]

NARRATIVE: CASE EVENT DATE: 20150712
